FAERS Safety Report 6562151 (Version 1)
Quarter: 2020Q3

REPORT INFORMATION
  Report Type: Report from Study
  Country: US (occurrence: US)
  Receive Date: 20080226
  Receipt Date: 20080226
  Transmission Date: 20201105
  Serious: Yes (Death, Hospitalization)
  Sender: FDA-Public Use
  Company Number: US-ROCHE-547553

PATIENT
  Age: 94 Year
  Sex: Female

DRUGS (1)
  1. IBANDRONIC ACID. [Suspect]
     Active Substance: IBANDRONIC ACID
     Indication: OSTEOPOROSIS
     Route: 048

REACTIONS (4)
  - Arteriosclerosis coronary artery [Fatal]
  - Pneumonia [Fatal]
  - Fall [None]
  - Head injury [Unknown]
